FAERS Safety Report 19606335 (Version 1)
Quarter: 2021Q3

REPORT INFORMATION
  Report Type: Spontaneous
  Country: QA (occurrence: QA)
  Receive Date: 20210725
  Receipt Date: 20210725
  Transmission Date: 20211014
  Serious: No
  Sender: FDA-Public Use
  Company Number: QA-LUPIN PHARMACEUTICALS INC.-2021-12813

PATIENT
  Age: 66 Year
  Sex: Male

DRUGS (6)
  1. HYDROXYCHLOROQUINE [Suspect]
     Active Substance: HYDROXYCHLOROQUINE
     Indication: COVID-19 PNEUMONIA
     Dosage: 400 MILLIGRAM
     Route: 065
  2. CEFUROXIME. [Suspect]
     Active Substance: CEFUROXIME
     Indication: COVID-19 PNEUMONIA
     Dosage: 1.5 GRAM, TID
     Route: 065
  3. AZITHROMYCIN ANHYDROUS. [Suspect]
     Active Substance: AZITHROMYCIN ANHYDROUS
     Indication: COVID-19 PNEUMONIA
     Dosage: 500 MILLIGRAM
     Route: 065
  4. TOCILIZUMAB. [Suspect]
     Active Substance: TOCILIZUMAB
     Indication: COVID-19 PNEUMONIA
     Route: 065
  5. CONVALESCENT PLASMA COVID?19 [Suspect]
     Active Substance: COVID-19 CONVALESCENT PLASMA
     Indication: COVID-19 PNEUMONIA
     Dosage: UNK
     Route: 065
  6. METHYLPREDNISOLONE. [Suspect]
     Active Substance: METHYLPREDNISOLONE
     Indication: COVID-19 PNEUMONIA
     Dosage: 40 MILLIGRAM, BID
     Route: 065

REACTIONS (1)
  - Off label use [Unknown]
